FAERS Safety Report 8319679-7 (Version None)
Quarter: 2012Q2

REPORT INFORMATION
  Report Type: 
  Country: None (occurrence: None)
  Receive Date: 20120427
  Receipt Date: 20120418
  Transmission Date: 20120825
  Serious: Yes (Other)
  Sender: FDA-Public Use
  Company Number: US-ASTRAZENECA-2012SE25696

PATIENT
  Age: 44 Year
  Sex: Male

DRUGS (1)
  1. SEROQUEL XR [Suspect]
     Indication: SLEEP DISORDER
     Route: 048

REACTIONS (3)
  - INTENTIONAL DRUG MISUSE [None]
  - OFF LABEL USE [None]
  - INTERVERTEBRAL DISC PROTRUSION [None]
